FAERS Safety Report 6819153-0 (Version None)
Quarter: 2010Q2

REPORT INFORMATION
  Report Type: 
  Country: None (occurrence: None)
  Receive Date: 20100630
  Receipt Date: 20100624
  Transmission Date: 20101027
  Serious: Yes (Other)
  Sender: FDA-Public Use
  Company Number: TPA2010A03417

PATIENT
  Age: 61 Year
  Sex: Female
  Weight: 64.8644 kg

DRUGS (9)
  1. KAPIDEX (DEXLANSOPRAZOLE) [Suspect]
     Indication: GASTROOESOPHAGEAL REFLUX DISEASE
     Dosage: SEE IMAGE
     Route: 048
     Dates: start: 20091201, end: 20091201
  2. KAPIDEX (DEXLANSOPRAZOLE) [Suspect]
     Indication: GASTROOESOPHAGEAL REFLUX DISEASE
     Dosage: SEE IMAGE
     Route: 048
     Dates: start: 20091201, end: 20100502
  3. KAPIDEX (DEXLANSOPRAZOLE) [Suspect]
     Indication: GASTROOESOPHAGEAL REFLUX DISEASE
     Dosage: SEE IMAGE
     Route: 048
     Dates: start: 20100503, end: 20100603
  4. SYNTHROID [Concomitant]
  5. RAMIPRIL [Concomitant]
  6. LIPITOR [Concomitant]
  7. FOLBEE (ALL OTHER THERAPEUTIC PRODUCTS) [Concomitant]
  8. DICYCLOMINE [Concomitant]
  9. CALCIUM + VITAMIN D (ERGOCALCIFEROL, DALCIUM PHOSPHATE, CALCIUM SODIUM [Concomitant]

REACTIONS (5)
  - BLOOD CALCIUM DECREASED [None]
  - BLOOD GASTRIN INCREASED [None]
  - DRUG INEFFECTIVE [None]
  - NAUSEA [None]
  - PARATHYROID TUMOUR BENIGN [None]
